FAERS Safety Report 25810715 (Version 2)
Quarter: 2025Q4

REPORT INFORMATION
  Report Type: Spontaneous
  Country: EU (occurrence: EU)
  Receive Date: 20250917
  Receipt Date: 20251001
  Transmission Date: 20260117
  Serious: Yes (Other)
  Sender: AUROBINDO
  Company Number: EU-AUROBINDO-AUR-APL-2025-045808

PATIENT
  Age: 27 Year
  Sex: Female

DRUGS (2)
  1. URSODIOL [Suspect]
     Active Substance: URSODIOL
     Indication: Drug-induced liver injury
     Dosage: UNK
     Route: 065
  2. CHOLESTYRAMINE [Suspect]
     Active Substance: CHOLESTYRAMINE
     Indication: Drug-induced liver injury
     Dosage: UNK
     Route: 065

REACTIONS (3)
  - Progressive familial intrahepatic cholestasis [Unknown]
  - Condition aggravated [Recovering/Resolving]
  - Drug ineffective [Unknown]
